FAERS Safety Report 10949517 (Version 6)
Quarter: 2015Q2

REPORT INFORMATION
  Report Type: Spontaneous
  Country: GB (occurrence: GB)
  Receive Date: 20150324
  Receipt Date: 20150424
  Transmission Date: 20150821
  Serious: Yes (Other)
  Sender: FDA-Public Use
  Company Number: GB-ACTAVIS-2015-05895

PATIENT
  Sex: Male

DRUGS (16)
  1. AMANTADINE HCL [Suspect]
     Active Substance: AMANTADINE HYDROCHLORIDE
     Indication: PRODUCT USED FOR UNKNOWN INDICATION
     Dosage: UNK
     Route: 065
     Dates: start: 2002, end: 2007
  2. BENSERAZIDE [Suspect]
     Active Substance: BENSERAZIDE
     Indication: PRODUCT USED FOR UNKNOWN INDICATION
     Dosage: UNK
     Route: 065
     Dates: start: 2002, end: 2007
  3. AMANTADINE HCL [Suspect]
     Active Substance: AMANTADINE HYDROCHLORIDE
     Dosage: 100 MG, BID;(200 MILLIGRAM DAILY)
     Route: 065
     Dates: start: 200811
  4. AMANTADINE HCL [Suspect]
     Active Substance: AMANTADINE HYDROCHLORIDE
     Dosage: 50 MG, BID;(100 MILLIGRAM DAILY)
     Route: 065
     Dates: start: 201007
  5. PRAMIPEXOLE (UNKNOWN) [Suspect]
     Active Substance: PRAMIPEXOLE
     Indication: PRODUCT USED FOR UNKNOWN INDICATION
     Dosage: UNK
     Route: 065
     Dates: start: 2002, end: 2007
  6. ROPINIROLE (UNKNOWN) [Suspect]
     Active Substance: ROPINIROLE
     Indication: PRODUCT USED FOR UNKNOWN INDICATION
     Dosage: UNK,
     Route: 065
     Dates: start: 2002, end: 2007
  7. ORPHENADRINE CITRATE (WATSON LABORATORIES) [Suspect]
     Active Substance: ORPHENADRINE CITRATE
     Indication: PRODUCT USED FOR UNKNOWN INDICATION
     Dosage: 50 MG, TID (150 MILLIGRAM DAILY)
     Route: 065
     Dates: start: 201007
  8. LEVODOPA [Suspect]
     Active Substance: LEVODOPA
     Indication: PRODUCT USED FOR UNKNOWN INDICATION
     Dosage: UNK
     Route: 065
     Dates: start: 2002, end: 2007
  9. CO-CARELDOPA [Suspect]
     Active Substance: CARBIDOPA\LEVODOPA
     Dosage: 750 MG (62.5 MG, 12 IN 1 D)
     Route: 065
     Dates: start: 200909, end: 201007
  10. ROPINIROLE (UNKNOWN) [Suspect]
     Active Substance: ROPINIROLE
     Dosage: 24 MG, DAILY (24 MILLIGRAM DAILY; MODIFIED RELEASE)
     Route: 065
     Dates: start: 200909
  11. APOMORPHINE [Suspect]
     Active Substance: APOMORPHINE
     Indication: PRODUCT USED FOR UNKNOWN INDICATION
     Dosage: UNK
     Route: 058
     Dates: start: 2007, end: 2007
  12. CO-CARELDOPA [Suspect]
     Active Substance: CARBIDOPA\LEVODOPA
     Indication: PRODUCT USED FOR UNKNOWN INDICATION
     Dosage: UNK; 5 TIMES A DAY
     Route: 065
     Dates: start: 2000, end: 200909
  13. SELEGILINE (UNKNOWN) [Suspect]
     Active Substance: SELEGILINE
     Indication: PRODUCT USED FOR UNKNOWN INDICATION
     Dosage: 10 MG, DAILY (10 MILLIGRAM DAILY)
     Route: 065
     Dates: start: 1995
  14. CO-CARELDOPA [Suspect]
     Active Substance: CARBIDOPA\LEVODOPA
     Dosage: 62.5 MG, Q2H
     Route: 065
     Dates: start: 201007
  15. ENTACAPONE. [Suspect]
     Active Substance: ENTACAPONE
     Indication: PRODUCT USED FOR UNKNOWN INDICATION
     Dosage: UNK
     Route: 065
     Dates: start: 2002, end: 200909
  16. ROTIGOTINE [Concomitant]
     Active Substance: ROTIGOTINE
     Indication: PRODUCT USED FOR UNKNOWN INDICATION
     Dosage: UNK
     Route: 065
     Dates: start: 2007

REACTIONS (15)
  - Memory impairment [Recovering/Resolving]
  - Skin mass [Recovered/Resolved]
  - Recall phenomenon [Recovering/Resolving]
  - Transient ischaemic attack [Unknown]
  - Haemorrhage [Recovered/Resolved]
  - Dyskinesia [Recovered/Resolved]
  - Hyperhidrosis [Recovered/Resolved]
  - Facial paresis [Unknown]
  - Balance disorder [Unknown]
  - Tremor [Recovered/Resolved]
  - Decreased appetite [Recovered/Resolved]
  - Feeling abnormal [Unknown]
  - Muscular weakness [Unknown]
  - Depression [Recovering/Resolving]
  - Headache [Recovered/Resolved]

NARRATIVE: CASE EVENT DATE: 2002
